FAERS Safety Report 9338597 (Version 2)
Quarter: 2013Q2

REPORT INFORMATION
  Report Type: Report from Study
  Country: US (occurrence: US)
  Receive Date: 20130610
  Receipt Date: 20130625
  Transmission Date: 20140414
  Serious: Yes (Hospitalization)
  Sender: FDA-Public Use
  Company Number: PHEH2013US012232

PATIENT
  Sex: Female
  Weight: 33.1 kg

DRUGS (2)
  1. ILARIS [Suspect]
     Indication: MUCKLE-WELLS SYNDROME
     Dosage: 91 MG, EVERY 8 WEEKS
     Route: 058
     Dates: start: 201202
  2. DIAMOX [Concomitant]
     Indication: BENIGN INTRACRANIAL HYPERTENSION
     Dosage: 250 MG, BID
     Dates: start: 201111

REACTIONS (1)
  - Malaise [Unknown]
